FAERS Safety Report 4481350-X (Version None)
Quarter: 2004Q4

REPORT INFORMATION
  Report Type: 
  Country: None (occurrence: None)
  Receive Date: 20041021
  Receipt Date: 20041006
  Transmission Date: 20050328
  Serious: Yes (Other)
  Sender: FDA-Public Use
  Company Number: 2004-DE-04921GD

PATIENT
  Age: 46 Year
  Sex: Male

DRUGS (3)
  1. LAMIVUDINE [Suspect]
     Indication: HIV INFECTION
     Route: 065
  2. STAVUDINE [Suspect]
     Indication: HIV INFECTION
     Route: 065
  3. VIRAMUNE [Suspect]
     Indication: HIV INFECTION
     Dosage: 200MG UNKNOWN
     Route: 065

REACTIONS (1)
  - HEPATITIS [None]
